FAERS Safety Report 12084541 (Version 1)
Quarter: 2016Q1

REPORT INFORMATION
  Report Type: Spontaneous
  Country: US (occurrence: US)
  Receive Date: 20160217
  Receipt Date: 20160217
  Transmission Date: 20160526
  Serious: Yes (Other)
  Sender: FDA-Public Use
  Company Number: US-PFIZER INC-2016092659

PATIENT
  Sex: Female

DRUGS (1)
  1. AROMASIN [Suspect]
     Active Substance: EXEMESTANE
     Indication: BREAST CANCER
     Dosage: UNK

REACTIONS (6)
  - Sjogren^s syndrome [Not Recovered/Not Resolved]
  - Dysphagia [Unknown]
  - Condition aggravated [Not Recovered/Not Resolved]
  - CREST syndrome [Not Recovered/Not Resolved]
  - Connective tissue disorder [Unknown]
  - Haemorrhage [Unknown]
